FAERS Safety Report 8601319-0 (Version None)
Quarter: 2012Q3

REPORT INFORMATION
  Report Type: 
  Country: None (occurrence: None)
  Receive Date: 20120817
  Receipt Date: 20120809
  Transmission Date: 20120928
  Serious: Yes (Death, Hospitalization)
  Sender: FDA-Public Use
  Company Number: JP-EISAI INC-E7389-01422-SPO-JP

PATIENT
  Sex: Female
  Weight: 59 kg

DRUGS (6)
  1. HALAVEN [Suspect]
     Indication: BREAST CANCER RECURRENT
     Route: 042
     Dates: start: 20110819, end: 20110826
  2. HALAVEN [Suspect]
     Indication: METASTASES TO BONE
  3. FIRSTCIN [Concomitant]
     Indication: PNEUMONIA
     Route: 041
  4. HALAVEN [Suspect]
  5. HALAVEN [Suspect]
     Indication: METASTASES TO LYMPH NODES
  6. ZOSYN [Concomitant]
     Indication: PNEUMONIA
     Route: 041

REACTIONS (7)
  - ALOPECIA [None]
  - BREAST CANCER [None]
  - LEUKOPENIA [None]
  - LYMPHOCYTE COUNT DECREASED [None]
  - NEUTROPENIA [None]
  - PNEUMONIA [None]
  - PYREXIA [None]
